FAERS Safety Report 4495281-2 (Version None)
Quarter: 2004Q4

REPORT INFORMATION
  Report Type: 
  Country: None (occurrence: None)
  Receive Date: 20041108
  Receipt Date: 20040825
  Transmission Date: 20050328
  Serious: No
  Sender: FDA-Public Use
  Company Number: US-GLAXOSMITHKLINE-A0523486A

PATIENT
  Sex: Female

DRUGS (2)
  1. AVANDAMET [Suspect]
     Indication: ILL-DEFINED DISORDER
     Dosage: 1TAB TWICE PER DAY
     Route: 048
  2. HYZAAR [Concomitant]

REACTIONS (3)
  - DEPRESSED MOOD [None]
  - NAUSEA [None]
  - VOMITING [None]
